FAERS Safety Report 20846187 (Version 1)
Quarter: 2022Q2

REPORT INFORMATION
  Report Type: Spontaneous
  Country: US (occurrence: None)
  Receive Date: 20220518
  Receipt Date: 20220518
  Transmission Date: 20220721
  Serious: Yes (Hospitalization, Other)
  Sender: FDA-Public Use
  Company Number: 2022A182155

PATIENT
  Age: 76 Year
  Sex: Female
  Weight: 68.9 kg

DRUGS (1)
  1. PULMICORT FLEXHALER [Suspect]
     Active Substance: BUDESONIDE
     Indication: Asthma
     Dosage: 180 MCG, ONE PUFF TWICE A DAY
     Route: 055

REACTIONS (9)
  - Osteoporosis [Not Recovered/Not Resolved]
  - Status asthmaticus [Unknown]
  - Unresponsive to stimuli [Recovered/Resolved]
  - Cardiac failure [Not Recovered/Not Resolved]
  - Lung disorder [Not Recovered/Not Resolved]
  - Emphysema [Not Recovered/Not Resolved]
  - Atrial fibrillation [Not Recovered/Not Resolved]
  - Chronic obstructive pulmonary disease [Not Recovered/Not Resolved]
  - Oxygen saturation decreased [Not Recovered/Not Resolved]

NARRATIVE: CASE EVENT DATE: 20210101
